FAERS Safety Report 5419702-3 (Version None)
Quarter: 2007Q3

REPORT INFORMATION
  Report Type: 
  Country: None (occurrence: None)
  Receive Date: 20070820
  Receipt Date: 20070810
  Transmission Date: 20080115
  Serious: Yes (Other)
  Sender: FDA-Public Use
  Company Number: HQWYE500910AUG07

PATIENT
  Sex: Male
  Weight: 63 kg

DRUGS (6)
  1. MYLOTARG [Suspect]
     Indication: ACUTE MYELOID LEUKAEMIA
     Route: 041
     Dates: start: 20061114, end: 20061114
  2. MYLOTARG [Suspect]
     Route: 041
     Dates: start: 20061130, end: 20061130
  3. SUCRALFATE [Concomitant]
     Indication: PROPHYLAXIS
     Route: 048
     Dates: start: 20061020, end: 20061215
  4. POLYMYXIN B SULFATE [Concomitant]
     Indication: PROPHYLAXIS
     Route: 048
     Dates: start: 20061020, end: 20061215
  5. BAKTAR [Concomitant]
     Indication: PROPHYLAXIS
     Route: 048
     Dates: start: 20061020, end: 20061215
  6. FUNGIZONE [Concomitant]
     Indication: PROPHYLAXIS
     Route: 048
     Dates: start: 20061020, end: 20061215

REACTIONS (8)
  - APNOEIC ATTACK [None]
  - BACTERIAL INFECTION [None]
  - DISSEMINATED INTRAVASCULAR COAGULATION [None]
  - GASTROINTESTINAL HAEMORRHAGE [None]
  - HYPOKALAEMIA [None]
  - PANCYTOPENIA [None]
  - PULMONARY HAEMORRHAGE [None]
  - TETANY [None]
